FAERS Safety Report 9162215 (Version 1)
Quarter: 2013Q1

REPORT INFORMATION
  Report Type: Spontaneous
  Country: DE (occurrence: DE)
  Receive Date: 20130314
  Receipt Date: 20130314
  Transmission Date: 20140127
  Serious: Yes (Other)
  Sender: FDA-Public Use
  Company Number: PHHY2013DE022727

PATIENT
  Sex: Female

DRUGS (6)
  1. EXFORGE [Suspect]
     Indication: HYPERTENSION
     Dosage: 80 MG VALS AND 5 MG AMLO
  2. ASS [Concomitant]
     Indication: PLATELET AGGREGATION INHIBITION
  3. ISOKET [Concomitant]
     Indication: CARDIAC DISORDER
  4. L-THYROXIN [Concomitant]
     Indication: HYPOTHYROIDISM
     Dosage: UNK UKN, UNK
  5. BISOPROLOL [Concomitant]
     Indication: PALPITATIONS
     Dosage: UNK UKN, UNK
  6. BISOPROLOL [Concomitant]
     Indication: BLOOD PRESSURE

REACTIONS (6)
  - Prothrombin time prolonged [Unknown]
  - Swelling face [Unknown]
  - Erythema [Unknown]
  - Dizziness [Unknown]
  - Influenza [Unknown]
  - Muscle spasms [Unknown]
